FAERS Safety Report 19924933 (Version 2)
Quarter: 2021Q4

REPORT INFORMATION
  Report Type: Report from Study
  Country: FR (occurrence: FR)
  Receive Date: 20211006
  Receipt Date: 20211112
  Transmission Date: 20220304
  Serious: Yes (Hospitalization, Other)
  Sender: FDA-Public Use
  Company Number: FR-GILEAD-2021-0550880

PATIENT
  Sex: Male
  Weight: 88 kg

DRUGS (2)
  1. BICTEGRAVIR\EMTRICITABINE\TENOFOVIR ALAFENAMIDE [Suspect]
     Active Substance: BICTEGRAVIR\EMTRICITABINE\TENOFOVIR ALAFENAMIDE
     Indication: HIV infection
     Dosage: 50/200/25 MG
     Route: 048
     Dates: start: 20200624
  2. BRINTELLIX [Concomitant]
     Active Substance: VORTIOXETINE HYDROBROMIDE
     Dosage: UNK
     Dates: start: 20210226

REACTIONS (2)
  - Intervertebral disc protrusion [Recovering/Resolving]
  - Intervertebral disc operation [Recovering/Resolving]

NARRATIVE: CASE EVENT DATE: 20210510
